FAERS Safety Report 22106335 (Version 1)
Quarter: 2023Q1

REPORT INFORMATION
  Report Type: Spontaneous
  Country: US (occurrence: US)
  Receive Date: 20230317
  Receipt Date: 20230317
  Transmission Date: 20230418
  Serious: No
  Sender: FDA-Public Use
  Company Number: US-SA-SAC20230310000190

PATIENT
  Sex: Male

DRUGS (3)
  1. DUPIXENT [Suspect]
     Active Substance: DUPILUMAB
     Dosage: UNK
  2. CIBINQO [Concomitant]
     Active Substance: ABROCITINIB
     Dosage: UNK
  3. TREMFYA [Concomitant]
     Active Substance: GUSELKUMAB
     Dosage: UNK

REACTIONS (5)
  - Skin haemorrhage [Unknown]
  - Skin fissures [Unknown]
  - Limb discomfort [Unknown]
  - Skin exfoliation [Unknown]
  - Drug ineffective [Unknown]
